FAERS Safety Report 14952059 (Version 1)
Quarter: 2018Q2

REPORT INFORMATION
  Report Type: Spontaneous
  Country: RO (occurrence: RO)
  Receive Date: 20180530
  Receipt Date: 20180530
  Transmission Date: 20180711
  Serious: Yes (Other)
  Sender: FDA-Public Use
  Company Number: RO-PFIZER INC-2018218479

PATIENT
  Age: 69 Year

DRUGS (1)
  1. VORICONAZOLE. [Suspect]
     Active Substance: VORICONAZOLE
     Indication: ANTIFUNGAL TREATMENT
     Dosage: UNK

REACTIONS (4)
  - Productive cough [Recovered/Resolved]
  - Pyrexia [Recovered/Resolved]
  - Wound secretion [Recovered/Resolved]
  - Klebsiella infection [Recovered/Resolved]
